FAERS Safety Report 5209878-5 (Version None)
Quarter: 2006Q4

REPORT INFORMATION
  Report Type: 
  Country: None (occurrence: None)
  Receive Date: 20061130
  Receipt Date: 20060511
  Transmission Date: 20070319
  Serious: Yes (Hospitalization)
  Sender: FDA-Public Use
  Company Number: 2006062731

PATIENT
  Age: 61 Year
  Sex: Male

DRUGS (3)
  1. ZYVOX [Suspect]
     Indication: ILL-DEFINED DISORDER
     Dosage: 1200 MG (600 MG, 2 IN 1 D)
     Dates: start: 20050301
  2. OXYCONTIN [Concomitant]
  3. VICODIN [Concomitant]

REACTIONS (5)
  - ANAEMIA [None]
  - CONSTIPATION [None]
  - GENERAL PHYSICAL HEALTH DETERIORATION [None]
  - LABORATORY TEST ABNORMAL [None]
  - WEIGHT DECREASED [None]
